FAERS Safety Report 5290681-5 (Version None)
Quarter: 2007Q2

REPORT INFORMATION
  Report Type: 
  Country: None (occurrence: None)
  Receive Date: 20070405
  Receipt Date: 20070405
  Transmission Date: 20071010
  Serious: Yes (Life-Threatening, Hospitalization)
  Sender: FDA-Public Use
  Company Number: None

PATIENT
  Age: 66 Year
  Sex: Male

DRUGS (7)
  1. PRANDIN [Suspect]
     Indication: DIABETES MELLITUS NON-INSULIN-DEPENDENT
     Dosage: 2 MG PO TID
     Route: 048
  2. GLIPIZIDE [Suspect]
     Dosage: 10 MG PO QD
     Route: 048
  3. FUROSEMIDE [Concomitant]
  4. NADOLOL [Concomitant]
  5. SPIRONOLACTONE [Concomitant]
  6. LACTULOSE [Concomitant]
  7. ZINC SULFATE [Concomitant]

REACTIONS (6)
  - HYPERGLYCAEMIA [None]
  - POLYDIPSIA [None]
  - POLYURIA [None]
  - RENAL FAILURE [None]
  - TREATMENT NONCOMPLIANCE [None]
  - VISION BLURRED [None]
